FAERS Safety Report 8278228-2 (Version None)
Quarter: 2012Q2

REPORT INFORMATION
  Report Type: 
  Country: None (occurrence: None)
  Receive Date: 20120412
  Receipt Date: 20111223
  Transmission Date: 20120825
  Serious: No
  Sender: FDA-Public Use
  Company Number: US-ASTRAZENECA-2010SE50352

PATIENT
  Age: 43 Year
  Sex: Female

DRUGS (5)
  1. PREVACID [Concomitant]
  2. NEXIUM [Suspect]
     Route: 048
  3. ZANTAC [Concomitant]
  4. CRESTOR [Suspect]
     Route: 048
  5. PRILOSEC [Suspect]
     Route: 048

REACTIONS (9)
  - GASTROOESOPHAGEAL REFLUX DISEASE [None]
  - INAPPROPRIATE SCHEDULE OF DRUG ADMINISTRATION [None]
  - NAUSEA [None]
  - DYSPEPSIA [None]
  - BLOOD CHOLESTEROL INCREASED [None]
  - DRUG DOSE OMISSION [None]
  - ABDOMINAL PAIN UPPER [None]
  - VOMITING [None]
  - DRUG INEFFECTIVE [None]
